FAERS Safety Report 9266847 (Version 2)
Quarter: 2013Q2

REPORT INFORMATION
  Report Type: Spontaneous
  Country: KR (occurrence: KR)
  Receive Date: 20130502
  Receipt Date: 20130515
  Transmission Date: 20140414
  Serious: Yes (Hospitalization)
  Sender: FDA-Public Use
  Company Number: KR-JNJFOC-20130414564

PATIENT
  Age: 63 Year
  Sex: Male

DRUGS (1)
  1. TYLENOL 500 [Suspect]
     Indication: HEADACHE
     Route: 048
     Dates: start: 2000

REACTIONS (2)
  - Dizziness [Recovered/Resolved]
  - Vomiting [Recovered/Resolved]
